FAERS Safety Report 10755639 (Version 1)
Quarter: 2015Q1

REPORT INFORMATION
  Report Type: Spontaneous
  Country: FR (occurrence: FR)
  Receive Date: 20150202
  Receipt Date: 20150202
  Transmission Date: 20150721
  Serious: Yes (Other)
  Sender: FDA-Public Use
  Company Number: FR-CELGENE-FRA-2014111494

PATIENT

DRUGS (2)
  1. DEXAMETHASONE. [Concomitant]
     Active Substance: DEXAMETHASONE
     Indication: POEMS SYNDROME
     Route: 065
     Dates: start: 2008, end: 2013
  2. REVLIMID [Suspect]
     Active Substance: LENALIDOMIDE
     Indication: POEMS SYNDROME
     Dosage: 25 MILLIGRAM
     Route: 048
     Dates: start: 2008, end: 2013

REACTIONS (10)
  - Rash [Unknown]
  - Anaemia [Unknown]
  - Venous thrombosis [Unknown]
  - Hepatitis [Unknown]
  - Gynaecomastia [Unknown]
  - Vascular endothelial growth factor overexpression [Unknown]
  - Off label use [Unknown]
  - Hepatitis cholestatic [Unknown]
  - Diarrhoea [Unknown]
  - Thrombocytopenia [Unknown]
